FAERS Safety Report 10670780 (Version 2)
Quarter: 2015Q1

REPORT INFORMATION
  Report Type: Spontaneous
  Country: DE (occurrence: None)
  Receive Date: 20141219
  Receipt Date: 20150202
  Transmission Date: 20150720
  Serious: Yes (Life-Threatening, Hospitalization, Other)
  Sender: FDA-Public Use
  Company Number: DE-H14001-14-01743

PATIENT
  Age: 27 Year
  Sex: Female
  Weight: 62 kg

DRUGS (6)
  1. CEFUROXIM HIKMA (CEFUROXIME) (1500 MILLIGRAM) (CEFUROXIME) [Suspect]
     Active Substance: CEFUROXIME SODIUM
     Indication: PROPHYLAXIS
     Dosage: 1500 MG, INTRAVENOUS (NOT OTHERWISE SPECIFIED)?
     Route: 042
     Dates: start: 20140704, end: 20140704
  2. PREDNISOLONE (PREDNISOLONE) (UNKNOWN) (PREDNISOLONE) [Concomitant]
  3. SYMBICORT (DUDESONIDE W/FORMOTEROL FUMARATE) (FORMOTEROL FUMARATE, BUDESONIDE) [Concomitant]
  4. CORTISON (CPRTOSPME ACETATE) (UNKNOWN) (CORTISONE ACETATE) [Concomitant]
  5. BERODUAL (DUOVENT) (FENOTEROL HYDROROMIDE, IPRATROPIUM BROMIDE) [Concomitant]
  6. DORMICUM (NITRAZEPAM) (UNKNOWN) (NITRAZEPAM) [Concomitant]

REACTIONS (15)
  - Bronchospasm [None]
  - Oxygen saturation decreased [None]
  - Drug hypersensitivity [None]
  - PO2 decreased [None]
  - Paraesthesia [None]
  - Pain in extremity [None]
  - White blood cell count increased [None]
  - Asthenia [None]
  - Anxiety [None]
  - Blood pH decreased [None]
  - Insomnia [None]
  - Thinking abnormal [None]
  - Post-traumatic stress disorder [None]
  - PCO2 increased [None]
  - Asthma [None]

NARRATIVE: CASE EVENT DATE: 2014
